FAERS Safety Report 4310036-7 (Version None)
Quarter: 2004Q1

REPORT INFORMATION
  Report Type: 
  Country: None (occurrence: None)
  Receive Date: 20040303
  Receipt Date: 20040226
  Transmission Date: 20041129
  Serious: Yes (Life-Threatening, Other)
  Sender: FDA-Public Use
  Company Number: 200412630GDDC

PATIENT
  Age: 56 Year
  Sex: Male

DRUGS (4)
  1. METRONIDAZOLE [Suspect]
     Indication: GINGIVITIS
     Route: 048
     Dates: start: 20040121, end: 20040127
  2. AMLODIPINE [Concomitant]
     Route: 048
     Dates: start: 20031111
  3. RAMIPRIL [Concomitant]
     Route: 048
     Dates: start: 20031111
  4. SIMVASTATIN [Concomitant]
     Route: 048
     Dates: start: 20031111

REACTIONS (2)
  - DEPRESSION [None]
  - SUICIDAL IDEATION [None]
